FAERS Safety Report 19292860 (Version 2)
Quarter: 2021Q3

REPORT INFORMATION
  Report Type: Spontaneous
  Country: US (occurrence: US)
  Receive Date: 20210524
  Receipt Date: 20210804
  Transmission Date: 20211014
  Serious: No
  Sender: FDA-Public Use
  Company Number: US-BIOGEN-2021BI01013524

PATIENT
  Sex: Female

DRUGS (1)
  1. TECFIDERA [Suspect]
     Active Substance: DIMETHYL FUMARATE
     Indication: MULTIPLE SCLEROSIS
     Dosage: FOR 2 WEEKS
     Route: 065
     Dates: start: 202106

REACTIONS (4)
  - Diarrhoea [Unknown]
  - Illness [Unknown]
  - Abdominal pain upper [Unknown]
  - Flushing [Unknown]
